FAERS Safety Report 23848853 (Version 7)
Quarter: 2025Q1

REPORT INFORMATION
  Report Type: Spontaneous
  Country: CA (occurrence: CA)
  Receive Date: 20240513
  Receipt Date: 20250122
  Transmission Date: 20250408
  Serious: Yes (Other)
  Sender: OTSUKA
  Company Number: CA-OTSUKA-2024_007101

PATIENT
  Age: 43 Year
  Sex: Male

DRUGS (5)
  1. ABILIFY [Suspect]
     Active Substance: ARIPIPRAZOLE
     Indication: Blood prolactin increased
     Dosage: 2 MG, QD
     Route: 065
     Dates: start: 2012
  2. ABILIFY MAINTENA [Suspect]
     Active Substance: ARIPIPRAZOLE
     Indication: Blood prolactin increased
     Route: 065
     Dates: start: 2017
  3. ABILIFY MAINTENA [Suspect]
     Active Substance: ARIPIPRAZOLE
     Route: 065
  4. ZYPREXA [Suspect]
     Active Substance: OLANZAPINE
     Indication: Product used for unknown indication
     Route: 065
  5. INVEGA SUSTENNA [Suspect]
     Active Substance: PALIPERIDONE PALMITATE
     Indication: Product used for unknown indication
     Route: 065

REACTIONS (14)
  - Surgery [Unknown]
  - Hallucination, auditory [Unknown]
  - Laryngitis [Unknown]
  - Communication disorder [Recovering/Resolving]
  - Eye discharge [Unknown]
  - Tendon disorder [Recovered/Resolved]
  - Mastication disorder [Unknown]
  - Photopsia [Unknown]
  - Bruxism [Recovered/Resolved]
  - Bruxism [Recovered/Resolved]
  - Speech disorder [Unknown]
  - Agitation [Unknown]
  - Overdose [Unknown]
  - Product use in unapproved indication [Unknown]

NARRATIVE: CASE EVENT DATE: 20240601
